FAERS Safety Report 7879853-0 (Version None)
Quarter: 2011Q4

REPORT INFORMATION
  Report Type: 
  Country: None (occurrence: None)
  Receive Date: 20111101
  Receipt Date: 20111020
  Transmission Date: 20120403
  Serious: Yes (Death)
  Sender: FDA-Public Use
  Company Number: GB-ROCHE-1004486

PATIENT
  Sex: Female

DRUGS (14)
  1. ZOPICLONE [Concomitant]
  2. LUCENTIS [Suspect]
     Indication: PRODUCT USED FOR UNKNOWN INDICATION
     Route: 050
  3. LUCENTIS [Suspect]
     Route: 050
     Dates: start: 20100614
  4. LORAZEPAM [Concomitant]
  5. RAMIPRIL [Concomitant]
  6. SIMVASTATIN [Concomitant]
  7. LUCENTIS [Suspect]
     Route: 050
     Dates: start: 20110101
  8. BISOPROLOL [Concomitant]
     Dates: start: 20100801
  9. GTN PATCH [Concomitant]
     Dates: start: 20100801
  10. OMEPRAZOLE [Concomitant]
  11. BUTRANS [Concomitant]
  12. FERROUS FUMARATE [Concomitant]
  13. ASPIRIN [Concomitant]
  14. LUCENTIS [Suspect]
     Route: 050
     Dates: start: 20100923

REACTIONS (3)
  - RHABDOMYOLYSIS [None]
  - LEFT VENTRICULAR FAILURE [None]
  - MYOCARDIAL INFARCTION [None]
